FAERS Safety Report 9914593 (Version 1)
Quarter: 2014Q1

REPORT INFORMATION
  Report Type: Spontaneous
  Country: US (occurrence: None)
  Receive Date: 20140218
  Receipt Date: 20140218
  Transmission Date: 20141002
  Serious: Yes (Hospitalization, Other)
  Sender: FDA-Public Use
  Company Number: BD-2014-0012

PATIENT
  Sex: 0

DRUGS (1)
  1. MORPHINE SULFATE (MORPHINE SULFATE) INJECTION [Suspect]
     Dosage: 10-25 MG, UNK, IM AND/OR IV
     Route: 030

REACTIONS (3)
  - Caesarean section [None]
  - Foetal heart rate abnormal [None]
  - Maternal drugs affecting foetus [None]
